FAERS Safety Report 4738108-3 (Version None)
Quarter: 2005Q3

REPORT INFORMATION
  Report Type: 
  Country: None (occurrence: None)
  Receive Date: 20050809
  Receipt Date: 20050729
  Transmission Date: 20060218
  Serious: Yes (Hospitalization)
  Sender: FDA-Public Use
  Company Number: PHRM2005FR02193

PATIENT
  Age: 29 Year
  Sex: Male

DRUGS (1)
  1. SANDOSTATIN [Suspect]
     Indication: ACROMEGALY
     Route: 058
     Dates: start: 20020915

REACTIONS (3)
  - ANAEMIA [None]
  - HYPOTHYROIDISM [None]
  - NEUTROPENIA [None]
